FAERS Safety Report 5693135-7 (Version None)
Quarter: 2008Q2

REPORT INFORMATION
  Report Type: 
  Country: None (occurrence: None)
  Receive Date: 20080402
  Receipt Date: 20080402
  Transmission Date: 20081010
  Serious: Yes (Hospitalization)
  Sender: FDA-Public Use
  Company Number: None

PATIENT
  Age: 59 Year
  Sex: Female
  Weight: 68.0396 kg

DRUGS (1)
  1. CHANTIX [Suspect]

REACTIONS (5)
  - ANXIETY [None]
  - HYPERTENSION [None]
  - HYPERVENTILATION [None]
  - PALPITATIONS [None]
  - URTICARIA [None]
